FAERS Safety Report 4932672-7 (Version None)
Quarter: 2006Q1

REPORT INFORMATION
  Report Type: 
  Country: None (occurrence: None)
  Receive Date: 20060301
  Receipt Date: 20060218
  Transmission Date: 20060701
  Serious: Yes (Death, Hospitalization)
  Sender: FDA-Public Use
  Company Number: T06-JPN-00095-01

PATIENT
  Age: 83 Year
  Sex: Male
  Weight: 55 kg

DRUGS (3)
  1. MEMANTINE HCL [Suspect]
     Indication: DEMENTIA ALZHEIMER'S TYPE
     Dosage: 20 MG QD PO
     Route: 048
     Dates: start: 20051218, end: 20060113
  2. SODIUM FERROUS CITRATE (FERROUS CITRATE) [Concomitant]
  3. REBAMIPIDE [Concomitant]

REACTIONS (16)
  - ASCITES [None]
  - BLOOD PRESSURE INCREASED [None]
  - BODY TEMPERATURE DECREASED [None]
  - COLD SWEAT [None]
  - DISSEMINATED INTRAVASCULAR COAGULATION [None]
  - FAT TISSUE INCREASED [None]
  - HEART RATE INCREASED [None]
  - LIPID METABOLISM DISORDER [None]
  - PANCREATIC CYST [None]
  - PANCREATIC NECROSIS [None]
  - PANCREATITIS ACUTE [None]
  - PERITONITIS [None]
  - PLEURAL EFFUSION [None]
  - RESPIRATORY DISORDER [None]
  - SWELLING [None]
  - THERAPY NON-RESPONDER [None]
